FAERS Safety Report 4555925-3 (Version None)
Quarter: 2005Q1

REPORT INFORMATION
  Report Type: 
  Country: None (occurrence: None)
  Receive Date: 20050119
  Receipt Date: 20050110
  Transmission Date: 20050727
  Serious: Yes (Hospitalization)
  Sender: FDA-Public Use
  Company Number: US-ABBOTT-05P-163-0285821-00

PATIENT
  Sex: Male
  Weight: 92.616 kg

DRUGS (7)
  1. HUMIRA [Suspect]
     Indication: PSORIATIC ARTHROPATHY
     Route: 058
     Dates: start: 20030101, end: 20041101
  2. HUMIRA [Suspect]
     Route: 058
     Dates: start: 20050104
  3. OXYCODONE HCL [Concomitant]
     Indication: PAIN
     Route: 048
  4. OXYCONTIN [Concomitant]
     Indication: PAIN
     Route: 048
  5. BUCINDOLOL HYDROCHLORIDE [Concomitant]
     Indication: RHEUMATOID ARTHRITIS
     Route: 048
     Dates: start: 20050101
  6. CLONAZEPAM [Concomitant]
     Indication: ANXIETY
     Route: 048
  7. VENLAFAXINE HCL [Concomitant]
     Indication: DEPRESSION
     Route: 048
     Dates: start: 20041001

REACTIONS (3)
  - ARTHRALGIA [None]
  - CONDITION AGGRAVATED [None]
  - HAND DEFORMITY [None]
